FAERS Safety Report 13166985 (Version 2)
Quarter: 2017Q1

REPORT INFORMATION
  Report Type: Report from Study
  Country: BR (occurrence: BR)
  Receive Date: 20170131
  Receipt Date: 20170208
  Transmission Date: 20170428
  Serious: Yes (Hospitalization, Other)
  Sender: FDA-Public Use
  Company Number: PHHY2016BR142505

PATIENT
  Sex: Female
  Weight: 60 kg

DRUGS (2)
  1. AFINITOR [Suspect]
     Active Substance: EVEROLIMUS
     Dosage: 5 MG, QD
     Route: 048
     Dates: start: 201611
  2. AFINITOR [Suspect]
     Active Substance: EVEROLIMUS
     Indication: NEUROENDOCRINE TUMOUR
     Dosage: 10 MG, QD
     Route: 048
     Dates: start: 20160809

REACTIONS (19)
  - Malaise [Not Recovered/Not Resolved]
  - Hypotension [Unknown]
  - Dry skin [Not Recovered/Not Resolved]
  - Decreased appetite [Not Recovered/Not Resolved]
  - Wound [Unknown]
  - Mouth injury [Not Recovered/Not Resolved]
  - Fatigue [Unknown]
  - Liver disorder [Unknown]
  - Headache [Unknown]
  - Pyrexia [Unknown]
  - Weight decreased [Not Recovered/Not Resolved]
  - Aphthous ulcer [Unknown]
  - Urinary tract infection [Unknown]
  - Dyspnoea [Unknown]
  - Enteritis infectious [Unknown]
  - Syncope [Unknown]
  - Pneumonitis [Unknown]
  - Diabetes mellitus [Not Recovered/Not Resolved]
  - Diarrhoea [Not Recovered/Not Resolved]
